FAERS Safety Report 14064207 (Version 1)
Quarter: 2017Q4

REPORT INFORMATION
  Report Type: Spontaneous
  Country: US (occurrence: US)
  Receive Date: 20171009
  Receipt Date: 20171009
  Transmission Date: 20180321
  Serious: Yes (Death, Hospitalization, Other)
  Sender: FDA-Public Use
  Company Number: US-RICONPHARMA LLC-2017RIC00017

PATIENT
  Age: 78 Year

DRUGS (2)
  1. UNSPECIFIED DIABETES MELLITUS MEDICATION [Concomitant]
     Active Substance: UNSPECIFIED INGREDIENT
     Indication: DIABETES MELLITUS
     Route: 065
  2. QUININE SULFATE. [Suspect]
     Active Substance: QUININE SULFATE
     Route: 065

REACTIONS (8)
  - Microangiopathic haemolytic anaemia [Unknown]
  - Cardiovascular disorder [Fatal]
  - Thrombotic microangiopathy [Unknown]
  - Cerebrovascular accident [Fatal]
  - Chronic kidney disease [Unknown]
  - Hypertension [Unknown]
  - Thrombocytopenia [Unknown]
  - Acute kidney injury [Unknown]

NARRATIVE: CASE EVENT DATE: 2000
